FAERS Safety Report 6156809-X (Version None)
Quarter: 2009Q2

REPORT INFORMATION
  Report Type: 
  Country: None (occurrence: None)
  Receive Date: 20090416
  Receipt Date: 20090409
  Transmission Date: 20091009
  Serious: Yes (Other)
  Sender: FDA-Public Use
  Company Number: US-SOLVAY-00209002037

PATIENT
  Age: 64 Year
  Sex: Female
  Weight: 48.18 kg

DRUGS (3)
  1. NORVASC [Concomitant]
     Indication: HYPERTENSION
     Dosage: DAILY DOSE:  UNKNOWN
     Route: 048
     Dates: start: 20071001
  2. CREON [Suspect]
     Indication: PANCREATITIS CHRONIC
     Dosage: DAILY DOSE: 4 DOSAGE FORM,AS USED:1CAP(MORNING AND AFTERNOON),2CAPS WITH DINNER,FREQ:3 TIMES A DAY
     Route: 048
     Dates: start: 20080101, end: 20090226
  3. CREON [Suspect]
     Dosage: DAILY DOSE: 4 DOSAGE FORM,AS USED:1CAP(MORNING AND AFTERNOON),2CAPS WITH DINNER,FREQ:3 TIMES A DAY
     Route: 048
     Dates: start: 20090404

REACTIONS (1)
  - PANCREATITIS ACUTE [None]
